FAERS Safety Report 4865924-X (Version None)
Quarter: 2005Q4

REPORT INFORMATION
  Report Type: 
  Country: None (occurrence: None)
  Receive Date: 20051226
  Receipt Date: 20051213
  Transmission Date: 20060501
  Serious: Yes (Other)
  Sender: FDA-Public Use
  Company Number: PHRM2005FR03271

PATIENT
  Age: 73 Year
  Sex: Female

DRUGS (1)
  1. ESIDRIX [Suspect]
     Route: 048

REACTIONS (3)
  - CEREBROVASCULAR ACCIDENT [None]
  - HYPONATRAEMIA [None]
  - POLYDIPSIA [None]
